FAERS Safety Report 10129282 (Version 1)
Quarter: 2014Q2

REPORT INFORMATION
  Report Type: Spontaneous
  Country: US (occurrence: US)
  Receive Date: 20140428
  Receipt Date: 20140428
  Transmission Date: 20141212
  Serious: No
  Sender: FDA-Public Use
  Company Number: US-ABBVIE-14P-163-1205055-00

PATIENT
  Age: 47 Year
  Sex: Male
  Weight: 131.21 kg

DRUGS (6)
  1. ANDROGEL [Suspect]
     Indication: BLOOD TESTOSTERONE DECREASED
     Route: 061
     Dates: start: 201312, end: 201401
  2. ANDROGEL [Suspect]
     Route: 061
     Dates: start: 2012, end: 201312
  3. NEXIUM [Concomitant]
     Indication: GASTROOESOPHAGEAL REFLUX DISEASE
  4. FLEXERIL [Concomitant]
     Indication: MUSCLE SPASMS
  5. FLEXERIL [Concomitant]
     Indication: MUSCLE SPASMS
  6. HYDROCODONE [Concomitant]
     Indication: BACK PAIN

REACTIONS (3)
  - Penis disorder [Not Recovered/Not Resolved]
  - Blood testosterone increased [Unknown]
  - Weight increased [Not Recovered/Not Resolved]
